FAERS Safety Report 5813552-1 (Version None)
Quarter: 2008Q3

REPORT INFORMATION
  Report Type: 
  Country: None (occurrence: None)
  Receive Date: 20080717
  Receipt Date: 20080703
  Transmission Date: 20090109
  Serious: Yes (Life-Threatening, Hospitalization)
  Sender: FDA-Public Use
  Company Number: AU-MERCK-0804AUS00130

PATIENT
  Age: 72 Year
  Sex: Female
  Weight: 62 kg

DRUGS (6)
  1. VYTORIN [Suspect]
     Indication: BLOOD CHOLESTEROL INCREASED
     Route: 048
     Dates: start: 20080228, end: 20080410
  2. USANA OPTIMIZERS BIOMEGA-3 [Concomitant]
     Route: 065
  3. MAREVAN [Concomitant]
     Indication: ATRIAL FIBRILLATION
     Route: 065
     Dates: start: 20070101
  4. SOTALOL HYDROCHLORIDE [Concomitant]
     Route: 065
  5. MONOPLUS [Concomitant]
     Indication: HYPERTENSION
     Route: 065
  6. LIPITOR [Concomitant]
     Route: 065
     Dates: end: 20080227

REACTIONS (6)
  - BACK PAIN [None]
  - BLOOD CREATINE PHOSPHOKINASE INCREASED [None]
  - HEPATITIS [None]
  - NEUTROPHILIA [None]
  - PYREXIA [None]
  - RHABDOMYOLYSIS [None]
